FAERS Safety Report 4288071-7 (Version None)
Quarter: 2004Q1

REPORT INFORMATION
  Report Type: 
  Country: None (occurrence: None)
  Receive Date: 20040209
  Receipt Date: 20031202
  Transmission Date: 20041129
  Serious: No
  Sender: FDA-Public Use
  Company Number: US-GLAXOSMITHKLINE-A0441662A

PATIENT
  Age: 58 Year
  Sex: Female

DRUGS (2)
  1. PAXIL [Suspect]
     Dosage: 12.5MG PER DAY
     Route: 048
  2. ATACAND [Concomitant]

REACTIONS (3)
  - COUGH [None]
  - FEELING ABNORMAL [None]
  - VOMITING [None]
